FAERS Safety Report 18389428 (Version 1)
Quarter: 2020Q4

REPORT INFORMATION
  Report Type: Spontaneous
  Country: US (occurrence: US)
  Receive Date: 20201016
  Receipt Date: 20201016
  Transmission Date: 20210114
  Serious: Yes (Other)
  Sender: FDA-Public Use
  Company Number: US-STRIDES ARCOLAB LIMITED-2020SP005505

PATIENT
  Age: 6 Decade
  Sex: Male

DRUGS (1)
  1. POLYETHYLENE GLYCOL 3350. [Suspect]
     Active Substance: POLYETHYLENE GLYCOL 3350
     Indication: COLONOSCOPY
     Dosage: UNK
     Route: 048

REACTIONS (5)
  - Urticaria [Unknown]
  - Angioedema [Unknown]
  - Syncope [Unknown]
  - Dyspnoea [Unknown]
  - Anaphylactic reaction [Unknown]
